FAERS Safety Report 21596782 (Version 1)
Quarter: 2022Q4

REPORT INFORMATION
  Report Type: Spontaneous
  Country: NL (occurrence: NL)
  Receive Date: 20221115
  Receipt Date: 20221115
  Transmission Date: 20230113
  Serious: Yes (Life-Threatening, Hospitalization)
  Sender: FDA-Public Use
  Company Number: None

PATIENT
  Sex: Male
  Weight: 88 kg

DRUGS (1)
  1. POLYETHYLENE GLYCOLS [Suspect]
     Active Substance: POLYETHYLENE GLYCOLS
     Indication: Volvulus
     Dosage: 2 DF, BID, 2 SACHET PER GLASS OF WATER 2X PER DAY
     Route: 065
     Dates: start: 20220823

REACTIONS (2)
  - Volvulus [Recovered/Resolved]
  - Off label use [Unknown]
